FAERS Safety Report 6202967-8 (Version None)
Quarter: 2009Q2

REPORT INFORMATION
  Report Type: 
  Country: None (occurrence: None)
  Receive Date: 20090520
  Receipt Date: 20080714
  Transmission Date: 20091009
  Serious: Yes (Other)
  Sender: FDA-Public Use
  Company Number: 2008AP001734

PATIENT
  Age: 73 Year
  Sex: Male

DRUGS (3)
  1. AMLODIPINE BESYLATE [Suspect]
     Indication: HYPERTENSION
     Dosage: 5 MG; PO
     Route: 048
     Dates: start: 20080526, end: 20080606
  2. CANDESARTAN CILEXETIL [Concomitant]
  3. CHLORAMPHENICOL [Concomitant]

REACTIONS (3)
  - CHROMATURIA [None]
  - DYSPEPSIA [None]
  - HEPATITIS [None]
